FAERS Safety Report 6234292-3 (Version None)
Quarter: 2009Q2

REPORT INFORMATION
  Report Type: 
  Country: None (occurrence: None)
  Receive Date: 20090612
  Receipt Date: 20090529
  Transmission Date: 20091009
  Serious: Yes (Other)
  Sender: FDA-Public Use
  Company Number: VAL_00285_2009

PATIENT
  Sex: Female

DRUGS (2)
  1. ROCALTROL [Suspect]
     Indication: OSTEOPOROSIS
     Dosage: (0.25 UG QD)
  2. CALTRATE +D (CALTRATE +D - CALCIUM/CALCIUM CARBONATE/COLECALCIFEROL/PA [Suspect]
     Indication: OSTEOPOROSIS
     Dosage: (1 DF QD ORAL)
     Route: 048

REACTIONS (1)
  - CLAVICLE FRACTURE [None]
